FAERS Safety Report 18999815 (Version 1)
Quarter: 2021Q1

REPORT INFORMATION
  Report Type: Spontaneous
  Country: US (occurrence: US)
  Receive Date: 20210312
  Receipt Date: 20210312
  Transmission Date: 20210420
  Serious: Yes (Life-Threatening, Hospitalization, Other)
  Sender: FDA-Public Use
  Company Number: US-JAZZ-2021-US-004448

PATIENT
  Age: 14 Year
  Sex: Male
  Weight: 126.1 kg

DRUGS (16)
  1. ASPARAGINASE [Suspect]
     Active Substance: ASPARAGINASE
     Dosage: UNKNOWN DOSE
     Route: 042
     Dates: start: 20201120
  2. RUXOLITINIB [Suspect]
     Active Substance: RUXOLITINIB
     Indication: ACUTE LYMPHOCYTIC LEUKAEMIA
     Dosage: 100 MILLIGRAM (1?14, 29?42)
     Route: 042
     Dates: start: 20200914, end: 20201031
  3. VINCRISTINE [Suspect]
     Active Substance: VINCRISTINE
     Indication: ACUTE LYMPHOCYTIC LEUKAEMIA
     Dosage: 2 MILLIGRAM (DAY 1, 8, 15, 43)
     Route: 042
     Dates: start: 20200914
  4. THIOGUANINE [Suspect]
     Active Substance: THIOGUANINE
     Dosage: 40 MILLIGRAM
     Route: 048
     Dates: start: 20201101
  5. METHOTREXATE. [Suspect]
     Active Substance: METHOTREXATE
     Dosage: UNK
     Route: 037
     Dates: start: 20201028
  6. ASPARAGINASE [Suspect]
     Active Substance: ASPARAGINASE
     Dosage: UNKNOWN DOSE
     Route: 042
     Dates: start: 20200928
  7. DEXAMETHASONE. [Suspect]
     Active Substance: DEXAMETHASONE
     Indication: ACUTE LYMPHOCYTIC LEUKAEMIA
     Dosage: 13 MILLIGRAM (DAY 1?7, 15?21)
     Route: 048
     Dates: start: 20200914
  8. THIOGUANINE [Suspect]
     Active Substance: THIOGUANINE
     Indication: ACUTE LYMPHOCYTIC LEUKAEMIA
     Dosage: 40 MILLIGRAM (29?42)
     Route: 048
     Dates: start: 20201021, end: 20201031
  9. ASPARAGINASE [Suspect]
     Active Substance: ASPARAGINASE
     Indication: ACUTE LYMPHOCYTIC LEUKAEMIA
     Dosage: 60000 INTERNATIONAL UNIT (3, 5, 7, 9 ,11, 15,43, 45)
     Route: 042
     Dates: start: 20200916
  10. METHOTREXATE. [Suspect]
     Active Substance: METHOTREXATE
     Indication: ACUTE LYMPHOCYTIC LEUKAEMIA
     Dosage: 15 MILLIGRAM (36)
     Route: 037
     Dates: start: 20200914
  11. CYTARABINE. [Suspect]
     Active Substance: CYTARABINE
     Dosage: UNK
     Route: 042
     Dates: start: 20201028
  12. RUXOLITINIB [Suspect]
     Active Substance: RUXOLITINIB
     Dosage: 100 MILLIGRAM
     Route: 048
     Dates: start: 20201101
  13. DOXORUBICIN [Suspect]
     Active Substance: DOXORUBICIN
     Indication: ACUTE LYMPHOCYTIC LEUKAEMIA
     Dosage: 63 MILLIGRAM (DAY1.8, 15)
     Dates: start: 20200914
  14. DEXAMETHASONE. [Suspect]
     Active Substance: DEXAMETHASONE
     Dosage: UNKNOWN DOSE
     Route: 048
     Dates: start: 20201014
  15. VINCRISTINE [Suspect]
     Active Substance: VINCRISTINE
     Dosage: UNKNOWN DOSE
     Route: 042
     Dates: start: 20201118
  16. CYTARABINE. [Suspect]
     Active Substance: CYTARABINE
     Indication: ACUTE LYMPHOCYTIC LEUKAEMIA
     Dosage: UNKNOWN DOSE
     Route: 042
     Dates: start: 20201021

REACTIONS (2)
  - Pneumonia [Recovered/Resolved]
  - COVID-19 [Recovering/Resolving]

NARRATIVE: CASE EVENT DATE: 20201030
